FAERS Safety Report 7894918-5 (Version None)
Quarter: 2011Q4

REPORT INFORMATION
  Report Type: 
  Country: None (occurrence: None)
  Receive Date: 20111106
  Receipt Date: 20110821
  Transmission Date: 20120403
  Serious: No
  Sender: FDA-Public Use
  Company Number: US-AMGEN-USASP2011042593

PATIENT
  Age: 32 Year
  Sex: Male

DRUGS (1)
  1. ENBREL [Suspect]
     Indication: PUSTULAR PSORIASIS
     Dosage: 50 MG, Q2WK
     Dates: start: 20110701

REACTIONS (4)
  - FATIGUE [None]
  - PYREXIA [None]
  - NIGHT SWEATS [None]
  - TOOTH INFECTION [None]
